FAERS Safety Report 5383001-9 (Version None)
Quarter: 2007Q2

REPORT INFORMATION
  Report Type: 
  Country: None (occurrence: None)
  Receive Date: 20070629
  Receipt Date: 20070405
  Transmission Date: 20071010
  Serious: Yes (Hospitalization)
  Sender: FDA-Public Use
  Company Number: US200704001223

PATIENT
  Age: 12 Year
  Sex: Female

DRUGS (2)
  1. HUMALOG [Suspect]
  2. HUMALOG PEN (HUMALOG PEN) [Concomitant]

REACTIONS (1)
  - ABNORMAL BEHAVIOUR [None]
